FAERS Safety Report 13112993 (Version 2)
Quarter: 2017Q2

REPORT INFORMATION
  Report Type: Spontaneous
  Country: US (occurrence: US)
  Receive Date: 20170113
  Receipt Date: 20170405
  Transmission Date: 20170830
  Serious: No
  Sender: FDA-Public Use
  Company Number: US-ELI_LILLY_AND_COMPANY-US201607006338

PATIENT
  Sex: Female
  Weight: 96.15 kg

DRUGS (3)
  1. CYMBALTA [Suspect]
     Active Substance: DULOXETINE HYDROCHLORIDE
     Indication: PAIN
     Dosage: 30 MG, QD
     Route: 048
     Dates: start: 20121130
  2. CYMBALTA [Suspect]
     Active Substance: DULOXETINE HYDROCHLORIDE
     Indication: DEPRESSION
     Dosage: 60 MG, EACH MORNING
     Route: 048
     Dates: end: 20150615
  3. CYMBALTA [Suspect]
     Active Substance: DULOXETINE HYDROCHLORIDE
     Dosage: 60 MG, EACH MORNING
     Route: 048
     Dates: start: 20150706

REACTIONS (19)
  - Night sweats [Unknown]
  - Headache [Unknown]
  - Insomnia [Unknown]
  - Fatigue [Unknown]
  - Drug withdrawal syndrome [Unknown]
  - Anxiety [Unknown]
  - Diarrhoea [Unknown]
  - Sensory disturbance [Unknown]
  - Sleep apnoea syndrome [Unknown]
  - Dysphoria [Unknown]
  - Abdominal distension [Unknown]
  - Palpitations [Unknown]
  - Thirst [Unknown]
  - Affect lability [Unknown]
  - Paraesthesia [Unknown]
  - Hyperhidrosis [Unknown]
  - Irritability [Unknown]
  - Abdominal pain [Unknown]
  - Drug dose omission [Unknown]
